FAERS Safety Report 7357358-3 (Version None)
Quarter: 2011Q1

REPORT INFORMATION
  Report Type: 
  Country: None (occurrence: None)
  Receive Date: 20110311
  Receipt Date: 20110311
  Transmission Date: 20110831
  Serious: Yes (Hospitalization, Other)
  Sender: FDA-Public Use
  Company Number: None

PATIENT
  Age: 21 Year
  Sex: Male
  Weight: 56.8 kg

DRUGS (1)
  1. HUMIRA [Suspect]
     Indication: CROHN'S DISEASE
     Dosage: 40MG Q OTHER WEEK INJECTION
     Route: 003
     Dates: start: 20090101, end: 20090915

REACTIONS (3)
  - PRURITUS [None]
  - RASH [None]
  - HODGKIN'S DISEASE STAGE II [None]
